FAERS Safety Report 10220238 (Version 2)
Quarter: 2014Q2

REPORT INFORMATION
  Report Type: Report from Study
  Country: US (occurrence: US)
  Receive Date: 20140606
  Receipt Date: 20140606
  Transmission Date: 20141212
  Serious: Yes (Death)
  Sender: FDA-Public Use
  Company Number: US-ROCHE-1390850

PATIENT
  Age: 95 Year
  Sex: Male

DRUGS (3)
  1. LUCENTIS [Suspect]
     Indication: AGE-RELATED MACULAR DEGENERATION
     Route: 050
     Dates: start: 20110207, end: 20131023
  2. WARFARIN [Concomitant]
  3. FUROSEMIDE [Concomitant]

REACTIONS (1)
  - Death [Fatal]
